FAERS Safety Report 21334226 (Version 6)
Quarter: 2022Q4

REPORT INFORMATION
  Report Type: Report from Study
  Country: KR (occurrence: KR)
  Receive Date: 20220914
  Receipt Date: 20221227
  Transmission Date: 20230113
  Serious: Yes (Death, Life-Threatening, Hospitalization)
  Sender: FDA-Public Use
  Company Number: KR-JNJFOC-20220920795

PATIENT
  Age: 84 Year
  Sex: Female
  Weight: 40 kg

DRUGS (8)
  1. DARATUMUMAB [Suspect]
     Active Substance: DARATUMUMAB
     Indication: Plasma cell myeloma refractory
     Route: 058
     Dates: start: 20220719, end: 20220830
  2. ULTRACET [Concomitant]
     Active Substance: ACETAMINOPHEN\TRAMADOL HYDROCHLORIDE
     Indication: Back pain
     Route: 048
     Dates: start: 20210621
  3. ASPIRIN [Concomitant]
     Active Substance: ASPIRIN
     Indication: Thrombosis prophylaxis
     Route: 048
     Dates: start: 20220719
  4. MEGACE F [Concomitant]
     Indication: Prophylaxis
     Route: 048
     Dates: start: 20220802, end: 20220909
  5. LENOGRASTIM [Concomitant]
     Active Substance: LENOGRASTIM
     Indication: Neutrophil count decreased
     Route: 058
     Dates: start: 20220906, end: 20220906
  6. LENOGRASTIM [Concomitant]
     Active Substance: LENOGRASTIM
     Route: 058
     Dates: start: 20220907, end: 20220907
  7. LENOGRASTIM [Concomitant]
     Active Substance: LENOGRASTIM
     Route: 058
     Dates: start: 20220908, end: 20220908
  8. BEAROBAN [Concomitant]
     Indication: Prophylaxis
     Dosage: 1
     Route: 062
     Dates: start: 20220816, end: 20220909

REACTIONS (3)
  - Septic shock [Fatal]
  - Pneumonia [Fatal]
  - Neutropenic sepsis [Fatal]

NARRATIVE: CASE EVENT DATE: 20220907
